FAERS Safety Report 16561513 (Version 1)
Quarter: 2019Q3

REPORT INFORMATION
  Report Type: Report from Study
  Country: US (occurrence: US)
  Receive Date: 20190711
  Receipt Date: 20190711
  Transmission Date: 20191004
  Serious: Yes (Other)
  Sender: FDA-Public Use
  Company Number: US-PFIZER INC-2019292242

PATIENT
  Age: 3 Year
  Sex: Male
  Weight: 13.8 kg

DRUGS (9)
  1. DACTINOMYCIN [Suspect]
     Active Substance: DACTINOMYCIN
     Dosage: 0.6 MG, CYCLE 14, DAY 1
     Route: 042
     Dates: start: 20190610
  2. TEMSIROLIMUS. [Suspect]
     Active Substance: TEMSIROLIMUS
     Indication: EMBRYONAL RHABDOMYOSARCOMA
     Dosage: UNK, CYCLIC
     Route: 042
     Dates: start: 20180823
  3. TEMSIROLIMUS. [Suspect]
     Active Substance: TEMSIROLIMUS
     Dosage: 9 MG, CYCLE 14, ON DAYS 1, 8, AND 15
     Route: 042
     Dates: start: 20190610
  4. CAMPTOSAR [Suspect]
     Active Substance: IRINOTECAN HYDROCHLORIDE
     Indication: EMBRYONAL RHABDOMYOSARCOMA
     Dosage: UNK UNK, CYCLIC
     Route: 042
     Dates: start: 20180823
  5. CYCLOPHOSPHAMIDE. [Suspect]
     Active Substance: CYCLOPHOSPHAMIDE
     Dosage: 720 MG, CYCLE 14, DAY 1
     Route: 042
     Dates: start: 20190610
  6. VINCRISTINE SULFATE. [Suspect]
     Active Substance: VINCRISTINE SULFATE
     Indication: EMBRYONAL RHABDOMYOSARCOMA
     Dosage: UNK, CYCLIC
     Route: 042
     Dates: start: 20180823
  7. VINCRISTINE SULFATE. [Suspect]
     Active Substance: VINCRISTINE SULFATE
     Dosage: 0.9 MG, CYCLY 14, DAY 1
     Route: 042
     Dates: start: 20190610
  8. DACTINOMYCIN [Suspect]
     Active Substance: DACTINOMYCIN
     Indication: EMBRYONAL RHABDOMYOSARCOMA
     Dosage: UNK UNK, CYCLIC
     Route: 042
     Dates: start: 20180823
  9. CYCLOPHOSPHAMIDE. [Suspect]
     Active Substance: CYCLOPHOSPHAMIDE
     Indication: EMBRYONAL RHABDOMYOSARCOMA
     Dosage: UNK UNK, CYCLIC
     Route: 042
     Dates: start: 20180823

REACTIONS (1)
  - Neutrophil count decreased [Recovering/Resolving]

NARRATIVE: CASE EVENT DATE: 20190617
